FAERS Safety Report 5413774-8 (Version None)
Quarter: 2007Q3

REPORT INFORMATION
  Report Type: 
  Country: None (occurrence: None)
  Receive Date: 20070814
  Receipt Date: 20070801
  Transmission Date: 20080115
  Serious: Yes (Other)
  Sender: FDA-Public Use
  Company Number: US-KINGPHARMUSA00001-K200700977

PATIENT

DRUGS (2)
  1. AVINZA [Suspect]
     Dosage: 90 MG, UNK
  2. AVINZA [Suspect]
     Dosage: 2700 MG, SINGLE

REACTIONS (3)
  - INTENTIONAL DRUG MISUSE [None]
  - INTENTIONAL OVERDOSE [None]
  - RESPIRATORY RATE DECREASED [None]
